FAERS Safety Report 9378653 (Version 1)
Quarter: 2013Q2

REPORT INFORMATION
  Report Type: Spontaneous
  Country: JP (occurrence: None)
  Receive Date: 20130626
  Receipt Date: 20130626
  Transmission Date: 20140414
  Serious: Yes (Hospitalization)
  Sender: FDA-Public Use
  Company Number: SYM-2013-04995

PATIENT
  Age: 49 Year
  Sex: Male

DRUGS (1)
  1. CHOREAZINE [Suspect]
     Indication: HUNTINGTON^S DISEASE
     Dosage: 1 IN 1 D
     Route: 048
     Dates: start: 20130528, end: 20130603

REACTIONS (2)
  - Subdural haematoma [None]
  - Fall [None]
